FAERS Safety Report 12892251 (Version 3)
Quarter: 2016Q4

REPORT INFORMATION
  Report Type: Spontaneous
  Country: US (occurrence: US)
  Receive Date: 20161028
  Receipt Date: 20161130
  Transmission Date: 20170207
  Serious: Yes (Life-Threatening, Hospitalization, Other)
  Sender: FDA-Public Use
  Company Number: US-ACCORD-045279

PATIENT
  Age: 8 Year
  Sex: Male

DRUGS (1)
  1. TACROLIMUS. [Suspect]
     Active Substance: TACROLIMUS
     Indication: PRODUCT USED FOR UNKNOWN INDICATION

REACTIONS (5)
  - Cerebrovascular accident [Not Recovered/Not Resolved]
  - Retinal haemorrhage [Recovered/Resolved]
  - Blindness [Not Recovered/Not Resolved]
  - Thrombotic microangiopathy [Recovered/Resolved with Sequelae]
  - Cavernous sinus thrombosis [Recovered/Resolved with Sequelae]
